FAERS Safety Report 6104146-1 (Version None)
Quarter: 2009Q1

REPORT INFORMATION
  Report Type: 
  Country: None (occurrence: None)
  Receive Date: 20090305
  Receipt Date: 20090225
  Transmission Date: 20090719
  Serious: Yes (Hospitalization)
  Sender: FDA-Public Use
  Company Number: US-ELI_LILLY_AND_COMPANY-US200902007345

PATIENT
  Sex: Female

DRUGS (7)
  1. HUMULIN 70/30 [Suspect]
     Dosage: 35 U, EACH MORNING
     Dates: start: 19940101
  2. HUMULIN 70/30 [Suspect]
     Dosage: 65 U, DAILY (1/D)
     Dates: start: 20090101
  3. HUMULIN 70/30 [Suspect]
     Dosage: 65 U, DAILY (1/D)
     Dates: start: 19940101
  4. HUMULIN 70/30 [Suspect]
     Dosage: 65 U, DAILY (1/D)
     Dates: start: 20090101
  5. HUMALOG [Suspect]
     Indication: TYPE 2 DIABETES MELLITUS
     Dates: start: 20090101, end: 20090101
  6. METFORMIN [Concomitant]
     Indication: TYPE 2 DIABETES MELLITUS
     Dosage: 500 MG, DAILY (1/D)
     Dates: start: 19990101
  7. VITAMINS [Concomitant]
     Dates: start: 20090223, end: 20090201

REACTIONS (10)
  - ARTHRITIS [None]
  - BLOOD GLUCOSE INCREASED [None]
  - FORMICATION [None]
  - HEART RATE DECREASED [None]
  - HYPOAESTHESIA ORAL [None]
  - INTESTINAL OBSTRUCTION [None]
  - LIP SWELLING [None]
  - OEDEMA MOUTH [None]
  - PAIN IN EXTREMITY [None]
  - PRURITUS [None]
